FAERS Safety Report 16137044 (Version 1)
Quarter: 2019Q1

REPORT INFORMATION
  Report Type: Report from Study
  Country: None (occurrence: AR)
  Receive Date: 20190329
  Receipt Date: 20190329
  Transmission Date: 20190418
  Serious: Yes (Other)
  Sender: FDA-Public Use
  Company Number: AR-ABBVIE-19K-007-2724867-00

PATIENT
  Age: 40 Year
  Sex: Female

DRUGS (1)
  1. HUMIRA [Suspect]
     Active Substance: ADALIMUMAB
     Indication: PSORIASIS
     Route: 058
     Dates: start: 20121011

REACTIONS (7)
  - Intervertebral disc protrusion [Recovered/Resolved]
  - Psoriasis [Recovering/Resolving]
  - Stress [Unknown]
  - Emotional disorder [Unknown]
  - Spinal cord compression [Unknown]
  - Pain in extremity [Unknown]
  - Muscle contracture [Unknown]

NARRATIVE: CASE EVENT DATE: 201809
